FAERS Safety Report 11595369 (Version 7)
Quarter: 2020Q1

REPORT INFORMATION
  Report Type: Report from Study
  Country: DE (occurrence: DE)
  Receive Date: 20151006
  Receipt Date: 20200228
  Transmission Date: 20200409
  Serious: Yes (Hospitalization)
  Sender: FDA-Public Use
  Company Number: DE-ROCHE-1641083

PATIENT
  Age: 79 Year
  Sex: Male
  Weight: 72 kg

DRUGS (33)
  1. FLUOROURACIL. [Suspect]
     Active Substance: FLUOROURACIL
     Dosage: DATE OF LAST DOSE PRIOR TO SAE 16/SEP/2015
     Route: 040
     Dates: start: 20140812, end: 20140909
  2. FLUOROURACIL. [Suspect]
     Active Substance: FLUOROURACIL
     Dosage: DATE OF LAST DOSE PRIOR TO SAE 16/SEP/2015
     Route: 040
     Dates: start: 20140923, end: 20150126
  3. FLUOROURACIL. [Suspect]
     Active Substance: FLUOROURACIL
     Dosage: DATE OF LAST DOSE PRIOR TO SAE 16/SEP/2015
     Route: 040
     Dates: start: 20150218, end: 20150624
  4. FLUOROURACIL. [Suspect]
     Active Substance: FLUOROURACIL
     Route: 042
     Dates: start: 20150708, end: 20150821
  5. FLUOROURACIL. [Suspect]
     Active Substance: FLUOROURACIL
     Dosage: DATE OF LAST DOSE PRIOR TO SAE: 16/SEP/2015
     Route: 042
     Dates: start: 20150902
  6. VERAPAMIL [Concomitant]
     Active Substance: VERAPAMIL HYDROCHLORIDE
     Indication: HYPERTENSION
     Route: 065
     Dates: start: 2011
  7. MCP [Concomitant]
     Active Substance: METOCLOPRAMIDE HYDROCHLORIDE
     Route: 065
     Dates: start: 20140128
  8. FLUOROURACIL. [Suspect]
     Active Substance: FLUOROURACIL
     Dosage: 2400 MG/M2
     Route: 042
     Dates: start: 20140128, end: 20140327
  9. FOLINIC ACID [Suspect]
     Active Substance: LEUCOVORIN
     Dosage: DATE OF LAST DOSE PRIOR TO SAE 16/SEP/2015
     Route: 042
     Dates: start: 20140407, end: 20140729
  10. DEXAMETHAZONE [Concomitant]
     Active Substance: DEXAMETHASONE
     Route: 065
     Dates: start: 20150218
  11. TORASEMIDE [Concomitant]
     Active Substance: TORSEMIDE
     Indication: HYPERTENSION
     Route: 048
     Dates: start: 2011
  12. FLUOROURACIL. [Suspect]
     Active Substance: FLUOROURACIL
     Dosage: DATE OF LAST DOSE PRIOR TO SAE 16/SEP/2015
     Route: 040
     Dates: start: 20150902
  13. FLUOROURACIL. [Suspect]
     Active Substance: FLUOROURACIL
     Route: 042
     Dates: start: 20140407, end: 20140731
  14. ASPIRIN. [Concomitant]
     Active Substance: ASPIRIN
     Route: 048
     Dates: start: 2007
  15. AMOXICILLIN. [Concomitant]
     Active Substance: AMOXICILLIN
     Indication: VASCULAR DEVICE INFECTION
     Route: 048
     Dates: start: 20141107, end: 20141113
  16. IRINOTECAN [Concomitant]
     Active Substance: IRINOTECAN
     Route: 042
     Dates: start: 20150708, end: 20150805
  17. FLUOROURACIL. [Suspect]
     Active Substance: FLUOROURACIL
     Dosage: DATE OF LAST DOSE PRIOR TO SAE 16/SEP/2015
     Route: 040
     Dates: start: 20140407, end: 20140729
  18. FOLINIC ACID [Suspect]
     Active Substance: LEUCOVORIN
     Dosage: DATE OF LAST DOSE PRIOR TO SAE 16/SEP/2015
     Route: 042
     Dates: start: 20150902, end: 20150916
  19. FLUOROURACIL. [Suspect]
     Active Substance: FLUOROURACIL
     Indication: COLORECTAL CANCER METASTATIC
     Dosage: DATE OF MOST RECENT DOSE OF SUSPECT BEFORE EVENT ONSET: 16/SEP/2015?400 MG/M2
     Route: 042
     Dates: start: 20140128, end: 20150916
  20. FOLINIC ACID [Suspect]
     Active Substance: LEUCOVORIN
     Indication: COLORECTAL CANCER METASTATIC
     Dosage: DATE OF MOST RECENT DOSE OF SUSPECT BEFORE EVENT ONSET: 16/SEP/2015
     Route: 042
     Dates: start: 20140128, end: 20150916
  21. FOLINIC ACID [Suspect]
     Active Substance: LEUCOVORIN
     Dosage: DATE OF LAST DOSE PRIOR TO SAE 16/SEP/2015
     Route: 042
     Dates: start: 20140923, end: 20150126
  22. LOPEDIUM [Concomitant]
     Active Substance: LOPERAMIDE
     Indication: DIARRHOEA
     Route: 048
     Dates: start: 20150318
  23. BEVACIZUMAB. [Suspect]
     Active Substance: BEVACIZUMAB
     Dosage: DATE OF LAST DOSE PRIOR TO SAE: 16/SEP/2015?PERMANENTLY DISCONTINUED
     Route: 042
     Dates: start: 20150916, end: 20150916
  24. FLUOROURACIL. [Suspect]
     Active Substance: FLUOROURACIL
     Route: 042
     Dates: start: 20140923, end: 20150128
  25. FOLINIC ACID [Suspect]
     Active Substance: LEUCOVORIN
     Dosage: DATE OF LAST DOSE PRIOR TO SAE 16/SEP/2015
     Route: 042
     Dates: start: 20150218, end: 20150624
  26. FOLINIC ACID [Suspect]
     Active Substance: LEUCOVORIN
     Dosage: DATE OF LAST DOSE PRIOR TO SAE 16/SEP/2015
     Route: 042
     Dates: start: 20150708, end: 20150819
  27. TAMSULOSIN [Concomitant]
     Active Substance: TAMSULOSIN
     Indication: BENIGN PROSTATIC HYPERPLASIA
     Route: 048
     Dates: start: 2011
  28. IRINOTECAN [Concomitant]
     Active Substance: IRINOTECAN
     Indication: COLORECTAL CANCER
     Route: 042
     Dates: start: 20150218, end: 20150624
  29. BEVACIZUMAB. [Suspect]
     Active Substance: BEVACIZUMAB
     Indication: COLORECTAL CANCER METASTATIC
     Dosage: TOTAL DOSE 415 MG?DATE OF MOST RECENT DOSE OF SUSPECT BEFORE EVENT ONSET: 16/SEP/2015
     Route: 042
     Dates: start: 20140128, end: 20150916
  30. FLUOROURACIL. [Suspect]
     Active Substance: FLUOROURACIL
     Route: 042
     Dates: start: 20140812, end: 20140911
  31. FLUOROURACIL. [Suspect]
     Active Substance: FLUOROURACIL
     Route: 042
     Dates: start: 20150218, end: 20150626
  32. FOLINIC ACID [Suspect]
     Active Substance: LEUCOVORIN
     Dosage: DATE OF LAST DOSE PRIOR TO SAE 16/SEP/2015
     Route: 042
     Dates: start: 20140812, end: 20140909
  33. FLUOROURACIL. [Suspect]
     Active Substance: FLUOROURACIL
     Dosage: DATE OF LAST DOSE PRIOR TO SAE 16/SEP/2015
     Route: 040
     Dates: start: 20150708, end: 20150819

REACTIONS (1)
  - Retinal detachment [Recovered/Resolved]

NARRATIVE: CASE EVENT DATE: 20150921
